FAERS Safety Report 8832145 (Version 1)
Quarter: 2012Q4

REPORT INFORMATION
  Report Type: Report from Study
  Country: US (occurrence: US)
  Receive Date: 20121009
  Receipt Date: 20121009
  Transmission Date: 20130627
  Serious: Yes (Hospitalization)
  Sender: FDA-Public Use
  Company Number: US-ROCHE-1138023

PATIENT
  Sex: Female

DRUGS (3)
  1. PEGASYS [Suspect]
     Indication: HEPATITIS C
     Route: 058
     Dates: start: 20120625
  2. COPEGUS [Suspect]
     Indication: HEPATITIS C
     Route: 065
     Dates: start: 20120625
  3. BOCEPREVIR [Suspect]
     Indication: HEPATITIS C
     Route: 065
     Dates: start: 20120723

REACTIONS (5)
  - Speech disorder [Unknown]
  - Anaemia [Unknown]
  - Blood pressure decreased [Unknown]
  - Blood glucose decreased [Unknown]
  - Feeling abnormal [Unknown]
